FAERS Safety Report 19973817 (Version 3)
Quarter: 2021Q4

REPORT INFORMATION
  Report Type: Report from Study
  Country: US (occurrence: US)
  Receive Date: 20211020
  Receipt Date: 20211207
  Transmission Date: 20220303
  Serious: Yes (Hospitalization)
  Sender: FDA-Public Use
  Company Number: US-JNJFOC-20211029493

PATIENT
  Age: 76 Year
  Sex: Female
  Weight: 73.6 kg

DRUGS (3)
  1. UPTRAVI [Suspect]
     Active Substance: SELEXIPAG
     Indication: Pulmonary arterial hypertension
     Dosage: UPTRAVI 1600 MCG ORALLY 2 TIMES DAILY
     Route: 048
  2. OPSUMIT [Suspect]
     Active Substance: MACITENTAN
     Indication: Pulmonary arterial hypertension
     Dosage: OPSUMIT 10MG ORALLY DAILY
     Route: 048
  3. TADALAFIL [Concomitant]
     Active Substance: TADALAFIL

REACTIONS (2)
  - Anaemia [Unknown]
  - Medical observation [Unknown]

NARRATIVE: CASE EVENT DATE: 20211002
